FAERS Safety Report 7674638-2 (Version None)
Quarter: 2011Q3

REPORT INFORMATION
  Report Type: 
  Country: None (occurrence: None)
  Receive Date: 20110810
  Receipt Date: 20110804
  Transmission Date: 20111222
  Serious: Yes (Other)
  Sender: FDA-Public Use
  Company Number: CL-ROCHE-787227

PATIENT
  Sex: Male
  Weight: 91 kg

DRUGS (9)
  1. ATENOLOL [Concomitant]
     Indication: HYPERTENSION
     Dosage: FREQUENCY: 25 MG IN THE MORNING AND 25 MG AT NIGHT
     Route: 048
     Dates: start: 20050804
  2. XELODA [Suspect]
     Indication: COLON CANCER
     Dosage: FREQUENCY: 2000 MG IN THE MORNING AND 1500 MG AT NIGHT
     Route: 048
     Dates: start: 20110701
  3. OXALIPLATIN [Suspect]
     Route: 042
     Dates: start: 20110727, end: 20110804
  4. XELODA [Suspect]
     Dosage: FREQUENCY: 1000 MG IN THE MORNING AND 1000 MG AT NIGHT
     Route: 048
     Dates: start: 20110727, end: 20110804
  5. OXALIPLATIN [Suspect]
     Indication: COLON CANCER
     Route: 042
     Dates: start: 20110701
  6. CLONAZEPAM [Concomitant]
     Dosage: FREQUENCY: AT NIGHT
     Route: 048
     Dates: start: 20080804
  7. LAMOTRIGINA [Concomitant]
     Indication: CONVULSION
     Dosage: FREQUENCY: 50 MG IN MORING AND 50 MG AT NIGHT.
     Route: 048
  8. METFORMIN HCL [Concomitant]
     Dosage: 425 MG IN THE MORNING AND 425 MG AT NIGHT
     Route: 048
     Dates: start: 20110304
  9. ENALAPRIL MALEATE [Concomitant]
     Indication: HYPERTENSION
     Dosage: FREQUENCY: 20 MG IN MORNING AND 10 MG AT NIGHT.
     Route: 048
     Dates: start: 20050804

REACTIONS (8)
  - ABDOMINAL PAIN [None]
  - DIARRHOEA [None]
  - DYSPHAGIA [None]
  - BLOOD POTASSIUM DECREASED [None]
  - PARAESTHESIA [None]
  - ERYTHEMA [None]
  - PAIN IN EXTREMITY [None]
  - BACK PAIN [None]
